FAERS Safety Report 16343233 (Version 1)
Quarter: 2019Q2

REPORT INFORMATION
  Report Type: Spontaneous
  Country: IT (occurrence: IT)
  Receive Date: 20190522
  Receipt Date: 20190522
  Transmission Date: 20190711
  Serious: Yes (Other)
  Sender: FDA-Public Use
  Company Number: IT-SAMSUNG BIOEPIS-SB-2019-11800

PATIENT
  Age: 46 Year
  Sex: Male
  Weight: 100 kg

DRUGS (2)
  1. INFLIXIMAB [Suspect]
     Active Substance: INFLIXIMAB
     Indication: PSORIATIC ARTHROPATHY
     Dosage: DOSAGE FORM: LYOPHILIZED POWDER, 100MG VIAL
     Route: 042
     Dates: start: 20180101, end: 20180716
  2. LEFLUNOMIDE. [Concomitant]
     Active Substance: LEFLUNOMIDE
     Indication: PSORIATIC ARTHROPATHY
     Route: 048
     Dates: start: 20170601, end: 20180716

REACTIONS (1)
  - Monoclonal gammopathy [Not Recovered/Not Resolved]

NARRATIVE: CASE EVENT DATE: 20180707
